FAERS Safety Report 7191697-4 (Version None)
Quarter: 2010Q4

REPORT INFORMATION
  Report Type: 
  Country: None (occurrence: None)
  Receive Date: 20101223
  Receipt Date: 20100818
  Transmission Date: 20110411
  Serious: No
  Sender: FDA-Public Use
  Company Number: US-AMGEN-KDL432225

PATIENT

DRUGS (3)
  1. ENBREL [Suspect]
     Indication: RHEUMATOID ARTHRITIS
     Dosage: 50 MG, QWK
  2. ESCITALOPRAM OXALATE [Concomitant]
     Dosage: 10 MG, QD
  3. METHOTREXATE [Concomitant]
     Dosage: UNK UNK, UNK
     Dates: end: 20091201

REACTIONS (4)
  - JOINT EFFUSION [None]
  - RHEUMATOID ARTHRITIS [None]
  - ROAD TRAFFIC ACCIDENT [None]
  - THERAPEUTIC RESPONSE DECREASED [None]
